FAERS Safety Report 13785954 (Version 1)
Quarter: 2017Q3

REPORT INFORMATION
  Report Type: Spontaneous
  Country: None (occurrence: US)
  Receive Date: 20170725
  Receipt Date: 20170725
  Transmission Date: 20171127
  Serious: Yes (Death, Hospitalization)
  Sender: FDA-Public Use
  Company Number: None

PATIENT
  Age: 46 Year
  Sex: Female
  Weight: 56.7 kg

DRUGS (3)
  1. TREMELIMUMAB. [Concomitant]
     Active Substance: TREMELIMUMAB
  2. MEMANTINE HYDROCHLORIDE. [Suspect]
     Active Substance: MEMANTINE HYDROCHLORIDE
     Dates: end: 20160815
  3. DURVALUMAB. [Concomitant]
     Active Substance: DURVALUMAB

REACTIONS (7)
  - Metastases to pelvis [None]
  - Metastases to abdominal cavity [None]
  - Cerebral infarction [None]
  - Malignant neoplasm progression [None]
  - Central nervous system lesion [None]
  - Metastases to central nervous system [None]
  - Metastatic neoplasm [None]

NARRATIVE: CASE EVENT DATE: 20160921
